FAERS Safety Report 14572460 (Version 2)
Quarter: 2018Q1

REPORT INFORMATION
  Report Type: Spontaneous
  Country: FR (occurrence: FR)
  Receive Date: 20180226
  Receipt Date: 20180312
  Transmission Date: 20180509
  Serious: Yes (Death)
  Sender: FDA-Public Use
  Company Number: FR-BAYER-2018-030401

PATIENT
  Age: 68 Year
  Sex: Female

DRUGS (2)
  1. GADOVIST [Suspect]
     Active Substance: GADOBUTROL
     Indication: NUCLEAR MAGNETIC RESONANCE IMAGING
     Dosage: 15 ML, UNK
  2. GADOVIST [Suspect]
     Active Substance: GADOBUTROL
     Indication: NUCLEAR MAGNETIC RESONANCE IMAGING
     Dosage: 15 ML, ONCE
     Route: 042

REACTIONS (5)
  - Acute respiratory distress syndrome [Fatal]
  - Acute pulmonary oedema [Fatal]
  - Cardiac arrest [Fatal]
  - Hypotension [Fatal]
  - Malaise [Fatal]

NARRATIVE: CASE EVENT DATE: 20180207
